FAERS Safety Report 8525039-6 (Version None)
Quarter: 2012Q3

REPORT INFORMATION
  Report Type: 
  Country: None (occurrence: None)
  Receive Date: 20120720
  Receipt Date: 20120716
  Transmission Date: 20120928
  Serious: Yes (Disabling, Other)
  Sender: FDA-Public Use
  Company Number: DE-BRISTOL-MYERS SQUIBB COMPANY-14721849

PATIENT
  Age: 35 Year
  Sex: Male
  Weight: 81 kg

DRUGS (2)
  1. ABILIFY [Suspect]
     Indication: PSYCHOTIC DISORDER
     Dates: start: 20100101
  2. ABILIFY [Suspect]
     Indication: PSYCHOTIC DISORDER
     Dosage: FOR ABOUT 4-5 MONTHS THE TREATMENT IS DONE
     Dates: start: 20080101

REACTIONS (15)
  - SLEEP DISORDER [None]
  - SEMEN VISCOSITY ABNORMAL [None]
  - MUSCLE STRAIN [None]
  - SOMNOLENCE [None]
  - VISUAL IMPAIRMENT [None]
  - PSYCHOTIC DISORDER [None]
  - HAEMORRHOIDS [None]
  - THROMBOSIS [None]
  - CONSTIPATION [None]
  - DEAFNESS NEUROSENSORY [None]
  - FATIGUE [None]
  - INTENTIONAL OVERDOSE [None]
  - VISUAL ACUITY REDUCED [None]
  - CIRCULATORY COLLAPSE [None]
  - PARAESTHESIA [None]
